FAERS Safety Report 18687626 (Version 9)
Quarter: 2021Q2

REPORT INFORMATION
  Report Type: Report from Study
  Country: CO (occurrence: CO)
  Receive Date: 20201231
  Receipt Date: 20210415
  Transmission Date: 20210717
  Serious: No
  Sender: FDA-Public Use
  Company Number: CO-TAKEDA-CO202004948

PATIENT
  Age: 36 Year
  Sex: Female
  Weight: 53 kg

DRUGS (37)
  1. ICATIBANT [Suspect]
     Active Substance: ICATIBANT ACETATE
     Dosage: 30 MILLIGRAM, PRN
     Route: 058
     Dates: start: 20180102
  2. ICATIBANT [Suspect]
     Active Substance: ICATIBANT ACETATE
     Dosage: 30 MILLIGRAM, PRN
     Route: 065
     Dates: start: 20200313, end: 20200313
  3. ICATIBANT [Suspect]
     Active Substance: ICATIBANT ACETATE
     Dosage: 30 MILLIGRAM, PRN
     Route: 058
     Dates: start: 20200416, end: 20200416
  4. ICATIBANT [Suspect]
     Active Substance: ICATIBANT ACETATE
     Dosage: 30 MILLIGRAM, PRN
     Route: 065
     Dates: start: 20200810, end: 20200812
  5. ICATIBANT [Suspect]
     Active Substance: ICATIBANT ACETATE
     Dosage: 30 MILLIGRAM, PRN
     Route: 065
     Dates: start: 20200815, end: 20200816
  6. ICATIBANT [Suspect]
     Active Substance: ICATIBANT ACETATE
     Dosage: 30 MILLIGRAM, PRN
     Route: 065
     Dates: start: 20200311, end: 20200311
  7. ICATIBANT [Suspect]
     Active Substance: ICATIBANT ACETATE
     Dosage: 30 MILLIGRAM,PRN
     Route: 058
     Dates: start: 20200421, end: 20200421
  8. ICATIBANT [Suspect]
     Active Substance: ICATIBANT ACETATE
     Indication: HEREDITARY ANGIOEDEMA
     Dosage: 30 MILLIGRAM, PRN
     Route: 058
     Dates: start: 20170103
  9. ICATIBANT [Suspect]
     Active Substance: ICATIBANT ACETATE
     Dosage: 30 MILLIGRAM, PRN
     Route: 058
     Dates: start: 20180102
  10. ICATIBANT [Suspect]
     Active Substance: ICATIBANT ACETATE
     Dosage: 30 MILLIGRAM, PRN
     Route: 058
     Dates: start: 20200413, end: 20200413
  11. ICATIBANT [Suspect]
     Active Substance: ICATIBANT ACETATE
     Dosage: 30 MILLIGRAM, PRN
     Route: 058
     Dates: start: 20200617, end: 20200617
  12. ICATIBANT [Suspect]
     Active Substance: ICATIBANT ACETATE
     Dosage: 30 MILLIGRAM, PRN
     Route: 058
     Dates: start: 20200625, end: 20200626
  13. ICATIBANT [Suspect]
     Active Substance: ICATIBANT ACETATE
     Dosage: 30 MILLIGRAM, PRN
     Route: 058
     Dates: start: 20200625, end: 20200626
  14. ICATIBANT [Suspect]
     Active Substance: ICATIBANT ACETATE
     Dosage: 30 MILLIGRAM, PRN
     Route: 065
     Dates: start: 20200213, end: 20200219
  15. ICATIBANT [Suspect]
     Active Substance: ICATIBANT ACETATE
     Dosage: 30 MILLIGRAM, PRN
     Route: 065
     Dates: start: 20200213, end: 20200219
  16. ICATIBANT [Suspect]
     Active Substance: ICATIBANT ACETATE
     Dosage: 30 MILLIGRAM, PRN
     Route: 065
     Dates: start: 20200313, end: 20200313
  17. ICATIBANT [Suspect]
     Active Substance: ICATIBANT ACETATE
     Dosage: 30 MILLIGRAM,PRN
     Route: 065
     Dates: start: 20200327, end: 20200327
  18. ICATIBANT [Suspect]
     Active Substance: ICATIBANT ACETATE
     Dosage: 30 MILLIGRAM, PRN
     Route: 065
     Dates: start: 20200330, end: 20200330
  19. ICATIBANT [Suspect]
     Active Substance: ICATIBANT ACETATE
     Dosage: 30 MILLIGRAM, PRN
     Route: 058
     Dates: start: 20200413, end: 20200413
  20. ICATIBANT [Suspect]
     Active Substance: ICATIBANT ACETATE
     Indication: HEREDITARY ANGIOEDEMA
     Dosage: 30 MILLIGRAM, PRN
     Route: 058
     Dates: start: 20170103
  21. ICATIBANT [Suspect]
     Active Substance: ICATIBANT ACETATE
     Dosage: 30 MILLIGRAM, PRN
     Route: 065
     Dates: start: 20200330, end: 20200330
  22. ICATIBANT [Suspect]
     Active Substance: ICATIBANT ACETATE
     Dosage: 30 MILLIGRAM, PRN
     Route: 058
     Dates: start: 20200617, end: 20200617
  23. ICATIBANT [Suspect]
     Active Substance: ICATIBANT ACETATE
     Dosage: 30 MILLIGRAM, PRN
     Route: 065
     Dates: start: 20201003, end: 20201004
  24. ICATIBANT [Suspect]
     Active Substance: ICATIBANT ACETATE
     Dosage: 30 MILLIGRAM, PRN
     Route: 058
     Dates: start: 20200416, end: 20200416
  25. ICATIBANT [Suspect]
     Active Substance: ICATIBANT ACETATE
     Dosage: 30 MILLIGRAM, PRN
     Route: 065
     Dates: start: 20200706, end: 20200706
  26. ICATIBANT [Suspect]
     Active Substance: ICATIBANT ACETATE
     Dosage: 30 MILLIGRAM, PRN
     Route: 065
     Dates: start: 20200711, end: 20200712
  27. DANZOL [Concomitant]
     Route: 048
  28. ICATIBANT [Suspect]
     Active Substance: ICATIBANT ACETATE
     Dosage: 30 MILLIGRAM,PRN
     Route: 065
     Dates: start: 20200327, end: 20200327
  29. ICATIBANT [Suspect]
     Active Substance: ICATIBANT ACETATE
     Dosage: 30 MILLIGRAM, PRN
     Route: 065
     Dates: start: 20200706, end: 20200706
  30. ICATIBANT [Suspect]
     Active Substance: ICATIBANT ACETATE
     Dosage: 30 MILLIGRAM, PRN
     Route: 065
     Dates: start: 20200810, end: 20200812
  31. ICATIBANT [Suspect]
     Active Substance: ICATIBANT ACETATE
     Dosage: 30 MILLIGRAM, PRN
     Route: 065
     Dates: start: 20201013, end: 20201016
  32. ICATIBANT [Suspect]
     Active Substance: ICATIBANT ACETATE
     Dosage: 30 MILLIGRAM, PRN
     Route: 065
     Dates: start: 20201013, end: 20201016
  33. ICATIBANT [Suspect]
     Active Substance: ICATIBANT ACETATE
     Dosage: 30 MILLIGRAM, PRN
     Route: 065
     Dates: start: 20200311, end: 20200311
  34. ICATIBANT [Suspect]
     Active Substance: ICATIBANT ACETATE
     Dosage: 30 MILLIGRAM,PRN
     Route: 058
     Dates: start: 20200421, end: 20200421
  35. ICATIBANT [Suspect]
     Active Substance: ICATIBANT ACETATE
     Dosage: 30 MILLIGRAM, PRN
     Route: 065
     Dates: start: 20200711, end: 20200712
  36. ICATIBANT [Suspect]
     Active Substance: ICATIBANT ACETATE
     Dosage: 30 MILLIGRAM, PRN
     Route: 065
     Dates: start: 20200815, end: 20200816
  37. ICATIBANT [Suspect]
     Active Substance: ICATIBANT ACETATE
     Dosage: 30 MILLIGRAM, PRN
     Route: 065
     Dates: start: 20201003, end: 20201004

REACTIONS (2)
  - Product availability issue [Recovered/Resolved]
  - No adverse event [Unknown]

NARRATIVE: CASE EVENT DATE: 20200825
